FAERS Safety Report 24063101 (Version 1)
Quarter: 2024Q3

REPORT INFORMATION
  Report Type: Report from Study
  Country: US (occurrence: US)
  Receive Date: 20240709
  Receipt Date: 20240709
  Transmission Date: 20241017
  Serious: Yes (Life-Threatening)
  Sender: RECORDATI
  Company Number: US-RECORDATI RARE DISEASES-2024004980

PATIENT

DRUGS (1)
  1. PANHEMATIN [Suspect]
     Active Substance: HEMIN
     Indication: Porphyria acute
     Dosage: UNK

REACTIONS (1)
  - Lyme disease [Recovering/Resolving]
